FAERS Safety Report 10529733 (Version 1)
Quarter: 2014Q4

REPORT INFORMATION
  Report Type: Spontaneous
  Country: US (occurrence: None)
  Receive Date: 20141020
  Receipt Date: 20141020
  Transmission Date: 20150528
  Serious: Yes (Death)
  Sender: FDA-Public Use
  Company Number: None

PATIENT
  Age: 55 Year
  Sex: Female
  Weight: 48.99 kg

DRUGS (1)
  1. KLONOPIN [Suspect]
     Active Substance: CLONAZEPAM
     Indication: ANXIETY
     Dosage: 1 AT BEDTIME, 1/2 2X DAY, AS NEEDED
     Route: 048
     Dates: start: 20140225, end: 20140323

REACTIONS (16)
  - Tongue disorder [None]
  - Apathy [None]
  - Feeling abnormal [None]
  - Anxiety [None]
  - Tremor [None]
  - Completed suicide [None]
  - Headache [None]
  - Abdominal pain [None]
  - Influenza [None]
  - Nausea [None]
  - Fall [None]
  - Weight decreased [None]
  - Insomnia [None]
  - Pharyngeal disorder [None]
  - Muscle twitching [None]
  - Decreased appetite [None]

NARRATIVE: CASE EVENT DATE: 20140325
